FAERS Safety Report 12512520 (Version 2)
Quarter: 2016Q3

REPORT INFORMATION
  Report Type: Spontaneous
  Country: US (occurrence: US)
  Receive Date: 20160630
  Receipt Date: 20160802
  Transmission Date: 20161109
  Serious: Yes (Death, Life-Threatening, Hospitalization)
  Sender: FDA-Public Use
  Company Number: US-JNJFOC-20160504784

PATIENT
  Age: 77 Year
  Sex: Male

DRUGS (1)
  1. XARELTO [Suspect]
     Active Substance: RIVAROXABAN
     Indication: PULMONARY EMBOLISM
     Route: 048
     Dates: start: 20140606, end: 20140613

REACTIONS (10)
  - Coagulopathy [Recovered/Resolved]
  - Spinal column injury [Fatal]
  - Intra-abdominal haematoma [Unknown]
  - Cardiogenic shock [Recovered/Resolved]
  - Soft tissue haemorrhage [Unknown]
  - Road traffic accident [Fatal]
  - Chest wall haematoma [Unknown]
  - Multiple organ dysfunction syndrome [Unknown]
  - Gastrointestinal haemorrhage [Unknown]
  - Cardio-respiratory arrest [Recovered/Resolved]

NARRATIVE: CASE EVENT DATE: 201406
